FAERS Safety Report 14800074 (Version 1)
Quarter: 2018Q2

REPORT INFORMATION
  Report Type: Spontaneous
  Country: US (occurrence: US)
  Receive Date: 20180416
  Receipt Date: 20180416
  Transmission Date: 20180711
  Serious: Yes (Death)
  Sender: FDA-Public Use
  Company Number: None

PATIENT
  Age: 75 Year
  Sex: Male
  Weight: 73.6 kg

DRUGS (1)
  1. AZACITIDINE. [Suspect]
     Active Substance: AZACITIDINE

REACTIONS (4)
  - Respiratory failure [None]
  - Drug ineffective [None]
  - Transfusion-related acute lung injury [None]
  - Hypoxia [None]

NARRATIVE: CASE EVENT DATE: 20180407
